FAERS Safety Report 7237185-8 (Version None)
Quarter: 2011Q1

REPORT INFORMATION
  Report Type: 
  Country: None (occurrence: None)
  Receive Date: 20110121
  Receipt Date: 20110112
  Transmission Date: 20110831
  Serious: Yes (Other)
  Sender: FDA-Public Use
  Company Number: NZ-RANBAXY-2011US-41112

PATIENT
  Sex: Female

DRUGS (1)
  1. SIMVASTATIN [Suspect]
     Indication: PRODUCT USED FOR UNKNOWN INDICATION
     Dosage: UNK, UNK

REACTIONS (12)
  - EUPHORIC MOOD [None]
  - INSOMNIA [None]
  - FATIGUE [None]
  - NIGHTMARE [None]
  - CONFUSIONAL STATE [None]
  - ANXIETY [None]
  - THINKING ABNORMAL [None]
  - MALAISE [None]
  - DEPRESSION [None]
  - MEMORY IMPAIRMENT [None]
  - AFFECT LABILITY [None]
  - AMNESIA [None]
